FAERS Safety Report 6140732-0 (Version None)
Quarter: 2009Q2

REPORT INFORMATION
  Report Type: 
  Country: None (occurrence: None)
  Receive Date: 20090401
  Receipt Date: 20090401
  Transmission Date: 20091009
  Serious: No
  Sender: FDA-Public Use
  Company Number: None

PATIENT
  Sex: Female
  Weight: 58.9676 kg

DRUGS (1)
  1. CLONAZEPAM [Suspect]
     Indication: CONVULSION
     Dosage: 1MG AM, PM 2QHS PO
     Route: 048

REACTIONS (2)
  - CONVULSION [None]
  - POST PROCEDURAL COMPLICATION [None]
